FAERS Safety Report 23536324 (Version 2)
Quarter: 2024Q1

REPORT INFORMATION
  Report Type: Spontaneous
  Country: IT (occurrence: IT)
  Receive Date: 20240219
  Receipt Date: 20240228
  Transmission Date: 20240409
  Serious: Yes (Hospitalization, Other)
  Sender: FDA-Public Use
  Company Number: IT-BAXTER-2023BAX036471

PATIENT
  Age: 68 Year
  Sex: Male
  Weight: 81 kg

DRUGS (18)
  1. CYCLOPHOSPHAMIDE [Suspect]
     Active Substance: CYCLOPHOSPHAMIDE
     Indication: Product used for unknown indication
     Dosage: 1485 MG, EVERY 3 WEEKS
     Route: 042
     Dates: start: 20231017
  2. DOXORUBICIN [Suspect]
     Active Substance: DOXORUBICIN
     Indication: Diffuse large B-cell lymphoma
     Dosage: 99 MG, EVERY 3 WEEKS, ONGOING
     Route: 042
     Dates: start: 20231017
  3. EPCORITAMAB [Suspect]
     Active Substance: EPCORITAMAB
     Indication: Diffuse large B-cell lymphoma
     Dosage: UNK ROUTE OF ADMIN (FREE TEXT): UNKNOWN ROUTE
     Route: 065
  4. PREDNISONE [Suspect]
     Active Substance: PREDNISONE
     Indication: Diffuse large B-cell lymphoma
     Dosage: 100 MG, C1-6, D1-5, EVERY 1 DAYS, ONGOING
     Route: 048
     Dates: start: 20231017
  5. RITUXIMAB [Suspect]
     Active Substance: RITUXIMAB
     Indication: Product used for unknown indication
     Dosage: 742.5 MG, EVERY 3 WEEKS,
     Route: 042
     Dates: start: 20231017
  6. VINCRISTINE [Suspect]
     Active Substance: VINCRISTINE
     Indication: Diffuse large B-cell lymphoma
     Dosage: 2 MG, EVERY 3 WEEKS, ONGOING
     Route: 042
     Dates: start: 20231017
  7. ACYCLOVIR [Concomitant]
     Active Substance: ACYCLOVIR
     Indication: Infection prophylaxis
     Dosage: 400 MG, 4/DAYS ROUTE OF ADMIN (FREE TEXT): UNKNOWN ROUTE
     Route: 065
     Dates: start: 20231017
  8. ALLOPURINOL [Concomitant]
     Active Substance: ALLOPURINOL
     Indication: Prophylaxis
     Dosage: 300 MG, EVERY 1 DAYS ROUTE OF ADMIN (FREE TEXT): UNKNOWN ROUTE
     Route: 065
     Dates: start: 20231017
  9. AUGMENTIN [Concomitant]
     Active Substance: AMOXICILLIN\CLAVULANATE POTASSIUM
     Indication: Pyrexia
     Dosage: 1000 MG, AS NECESSARY ROUTE OF ADMIN (FREE TEXT): UNKNOWN ROUTE
     Route: 065
     Dates: start: 20231017
  10. BACTRIM [Concomitant]
     Active Substance: SULFAMETHOXAZOLE\TRIMETHOPRIM
     Indication: Infection prophylaxis
     Dosage: 960 MG, 2/WEEKS ROUTE OF ADMIN (FREE TEXT): UNKNOWN ROUTE
     Route: 065
     Dates: start: 20231017
  11. K C L [Concomitant]
     Indication: Hypokalaemia
     Dosage: 60 MEQ, EVERY 1 DAYS ROUTE OF ADMIN (FREE TEXT): UNKNOWN ROUTE
     Route: 065
     Dates: start: 20231024, end: 20231027
  12. LOSEC [Concomitant]
     Active Substance: OMEPRAZOLE
     Indication: Prophylaxis
     Dosage: 40 MG, EVERY 1 DAYS ROUTE OF ADMIN (FREE TEXT): UNKNOWN ROUTE
     Route: 065
     Dates: start: 20231017
  13. MOVICOL [Concomitant]
     Active Substance: POLYETHYLENE GLYCOL 3350\POTASSIUM CHLORIDE\SODIUM BICARBONATE\SODIUM CHLORIDE
     Indication: Constipation
     Dosage: UNK, AS NECESSARY ROUTE OF ADMIN (FREE TEXT): UNKNOWN ROUTE
     Route: 065
     Dates: start: 20231017
  14. MYCOSTATIN [Concomitant]
     Active Substance: NYSTATIN
     Indication: Infection prophylaxis
     Dosage: 4 ML ROUTE OF ADMIN (FREE TEXT): UNKNOWN ROUTE
     Route: 065
     Dates: start: 20231017
  15. OMEPRAZOLE [Concomitant]
     Active Substance: OMEPRAZOLE
     Indication: Prophylaxis
     Dosage: 40 MG, EVERY 1 DAYS ROUTE OF ADMIN (FREE TEXT): UNKNOWN ROUTE
     Route: 065
     Dates: start: 20231017
  16. PANADOL [Concomitant]
     Active Substance: ACETAMINOPHEN
     Indication: Pyrexia
     Dosage: 1000 MG, AS NECESSARY ROUTE OF ADMIN (FREE TEXT): UNKNOWN ROUTE
     Route: 065
     Dates: start: 20231017
  17. POTASSIUM CHLORIDE [Concomitant]
     Active Substance: POTASSIUM CHLORIDE
     Indication: Hypokalaemia
     Dosage: 60 MEQ, EVERY 1 DAYS ROUTE OF ADMIN (FREE TEXT): UNKNOWN ROUTE
     Route: 065
     Dates: start: 20231024, end: 20231027
  18. ZOFRAN [Concomitant]
     Active Substance: ONDANSETRON HYDROCHLORIDE
     Indication: Nausea
     Dosage: 8 MG, AS NECESSARY ROUTE OF ADMIN (FREE TEXT): UNKNOWN ROUTE
     Route: 065
     Dates: start: 20231017

REACTIONS (4)
  - Febrile neutropenia [Recovered/Resolved]
  - Asthenia [Unknown]
  - Pyrexia [Unknown]
  - Diarrhoea [Unknown]

NARRATIVE: CASE EVENT DATE: 20231024
